FAERS Safety Report 5653663-7 (Version None)
Quarter: 2008Q1

REPORT INFORMATION
  Report Type: 
  Country: None (occurrence: None)
  Receive Date: 20080306
  Receipt Date: 20080226
  Transmission Date: 20080703
  Serious: Yes (Other)
  Sender: FDA-Public Use
  Company Number: TW-ELI_LILLY_AND_COMPANY-TW200802005768

PATIENT
  Age: 50 Year
  Sex: Female

DRUGS (2)
  1. GEMZAR [Suspect]
     Indication: LUNG NEOPLASM MALIGNANT
     Dosage: UNK, UNKNOWN
     Route: 042
     Dates: start: 20080204, end: 20080214
  2. CISPLATIN [Concomitant]
     Dosage: UNK, UNKNOWN
     Dates: start: 20080204, end: 20080214

REACTIONS (4)
  - DERMATITIS BULLOUS [None]
  - EYELID OEDEMA [None]
  - FACE OEDEMA [None]
  - PETECHIAE [None]
